FAERS Safety Report 7992170-3 (Version None)
Quarter: 2011Q4

REPORT INFORMATION
  Report Type: 
  Country: None (occurrence: None)
  Receive Date: 20111219
  Receipt Date: 20110124
  Transmission Date: 20120403
  Serious: No
  Sender: FDA-Public Use
  Company Number: US-ASTRAZENECA-2011SE04245

PATIENT
  Sex: Female

DRUGS (3)
  1. GENERIC ZANTAC [Concomitant]
  2. LANSOPRAZOLE [Concomitant]
  3. CRESTOR [Suspect]
     Route: 048

REACTIONS (5)
  - POLLAKIURIA [None]
  - CHEST DISCOMFORT [None]
  - GASTROOESOPHAGEAL REFLUX DISEASE [None]
  - NASAL DRYNESS [None]
  - DRY MOUTH [None]
